FAERS Safety Report 20929317 (Version 2)
Quarter: 2022Q4

REPORT INFORMATION
  Report Type: Spontaneous
  Country: US (occurrence: US)
  Receive Date: 20220608
  Receipt Date: 20221210
  Transmission Date: 20230113
  Serious: Yes (Hospitalization, Other)
  Sender: FDA-Public Use
  Company Number: US-EXELIXIS-XL18422052155

PATIENT
  Age: 71 Year
  Sex: Male

DRUGS (7)
  1. NIVOLUMAB [Suspect]
     Active Substance: NIVOLUMAB
     Indication: Renal cell carcinoma
     Route: 042
     Dates: start: 20211213, end: 20211213
  2. NIVOLUMAB [Suspect]
     Active Substance: NIVOLUMAB
     Route: 042
     Dates: start: 20220520
  3. CABOZANTINIB [Suspect]
     Active Substance: CABOZANTINIB
     Indication: Renal cell carcinoma
     Route: 065
     Dates: start: 20211213, end: 20211230
  4. CABOZANTINIB [Suspect]
     Active Substance: CABOZANTINIB
     Route: 065
     Dates: start: 20220520
  5. INVESTIGATIONAL PRODUCT [Suspect]
     Active Substance: INVESTIGATIONAL PRODUCT
     Indication: Renal cell carcinoma
     Route: 048
     Dates: start: 20211213, end: 20211230
  6. INVESTIGATIONAL PRODUCT [Suspect]
     Active Substance: INVESTIGATIONAL PRODUCT
     Route: 048
     Dates: start: 20220104, end: 20220106
  7. INVESTIGATIONAL PRODUCT [Suspect]
     Active Substance: INVESTIGATIONAL PRODUCT
     Route: 048
     Dates: start: 20220520

REACTIONS (3)
  - Atrial fibrillation [Recovered/Resolved]
  - COVID-19 pneumonia [Recovered/Resolved]
  - Atrial flutter [Recovered/Resolved]

NARRATIVE: CASE EVENT DATE: 20211230
